FAERS Safety Report 6499073 (Version 3)
Quarter: 2014Q4

REPORT INFORMATION
  Report Type: Spontaneous
  Country: US (occurrence: US)
  Receive Date: 20071213
  Receipt Date: 20141023
  Transmission Date: 20150529
  Serious: Yes (Other)
  Sender: FDA-Public Use
  Company Number: US-AMGEN-KDL238196

PATIENT
  Age: 70 Year
  Sex: Female

DRUGS (3)
  1. ENBREL [Suspect]
     Active Substance: ETANERCEPT
     Dosage: 25 MG, 2 TIMES/WK
     Route: 058
     Dates: start: 19971001
  2. ENBREL [Suspect]
     Active Substance: ETANERCEPT
     Dosage: 25 MG, 2 TIMES/WK
     Route: 058
     Dates: start: 19971001
  3. ENBREL [Suspect]
     Active Substance: ETANERCEPT
     Indication: PSORIATIC ARTHROPATHY
     Dosage: 25 MG, 2 TIMES/WK
     Route: 058
     Dates: start: 19971001

REACTIONS (4)
  - Drug ineffective [Recovered/Resolved]
  - Macular degeneration [Not Recovered/Not Resolved]
  - Injection site pain [Recovered/Resolved]
  - Vision blurred [Unknown]

NARRATIVE: CASE EVENT DATE: 20070719
